FAERS Safety Report 5127327-2 (Version None)
Quarter: 2006Q4

REPORT INFORMATION
  Report Type: 
  Country: None (occurrence: None)
  Receive Date: 20061010
  Receipt Date: 20060925
  Transmission Date: 20070319
  Serious: Yes (Other)
  Sender: FDA-Public Use
  Company Number: 2391

PATIENT
  Age: 62 Year
  Sex: Male

DRUGS (2)
  1. TARGRETIN [Suspect]
     Indication: LYMPHOMATOID PAPULOSIS
     Dosage: 300 MG DAILY PO
     Route: 048
     Dates: start: 20050101, end: 20060101
  2. TARGRETIN [Suspect]
     Indication: LYMPHOMATOID PAPULOSIS
     Dosage: 75 MG DAILY PO
     Route: 048
     Dates: start: 20060101

REACTIONS (3)
  - DIFFUSE LARGE B-CELL LYMPHOMA [None]
  - GINGIVAL DISORDER [None]
  - GRANULOMA [None]
